FAERS Safety Report 12751087 (Version 2)
Quarter: 2017Q3

REPORT INFORMATION
  Report Type: Spontaneous
  Country: US (occurrence: US)
  Receive Date: 20160915
  Receipt Date: 20170914
  Transmission Date: 20171127
  Serious: Yes (Other)
  Sender: FDA-Public Use
  Company Number: US-ASTELLAS-2016US030741

PATIENT
  Age: 84 Year
  Sex: Male

DRUGS (2)
  1. XTANDI [Suspect]
     Active Substance: ENZALUTAMIDE
     Indication: PROSTATE CANCER
     Route: 048
     Dates: start: 20160706
  2. XTANDI [Suspect]
     Active Substance: ENZALUTAMIDE
     Indication: BONE CANCER METASTATIC
     Route: 048

REACTIONS (10)
  - Peripheral swelling [Unknown]
  - Head discomfort [Unknown]
  - Oedema peripheral [Unknown]
  - Diarrhoea [Recovering/Resolving]
  - Hypertension [Unknown]
  - Decreased appetite [Unknown]
  - Burning sensation [Unknown]
  - Weight fluctuation [Unknown]
  - Gastrointestinal toxicity [Unknown]
  - Tenderness [Unknown]

NARRATIVE: CASE EVENT DATE: 201610
